FAERS Safety Report 14203079 (Version 1)
Quarter: 2017Q4

REPORT INFORMATION
  Report Type: Report from Study
  Country: US (occurrence: US)
  Receive Date: 20171120
  Receipt Date: 20171120
  Transmission Date: 20180321
  Serious: Yes (Other)
  Sender: FDA-Public Use
  Company Number: US-AMGEN-USASL2017127051

PATIENT
  Age: 60 Year
  Sex: Female

DRUGS (1)
  1. NPLATE [Suspect]
     Active Substance: ROMIPLOSTIM
     Indication: IMMUNE THROMBOCYTOPENIC PURPURA
     Dosage: UNK, QWK
     Route: 065

REACTIONS (14)
  - Vomiting [Recovered/Resolved]
  - Malaise [Unknown]
  - Depressed mood [Unknown]
  - Asthenia [Unknown]
  - Nausea [Unknown]
  - Pain [Unknown]
  - Diarrhoea [Unknown]
  - Blood pressure increased [Unknown]
  - Haematemesis [Recovered/Resolved]
  - Sleep disorder [Unknown]
  - Alopecia [Unknown]
  - Petechiae [Unknown]
  - Platelet count abnormal [Unknown]
  - Contusion [Not Recovered/Not Resolved]

NARRATIVE: CASE EVENT DATE: 201709
